FAERS Safety Report 20893651 (Version 2)
Quarter: 2022Q2

REPORT INFORMATION
  Report Type: Spontaneous
  Country: US (occurrence: US)
  Receive Date: 20220531
  Receipt Date: 20220602
  Transmission Date: 20220721
  Serious: No
  Sender: FDA-Public Use
  Company Number: US-GSKCCFUS-Case-01391248_AE-80230

PATIENT
  Sex: Female

DRUGS (1)
  1. TRELEGY ELLIPTA [Suspect]
     Active Substance: FLUTICASONE FUROATE\UMECLIDINIUM BROMIDE\VILANTEROL TRIFENATATE
     Indication: Chronic obstructive pulmonary disease
     Dosage: 1 PUFF(S), QD (100/62.5/25 MCG)
     Route: 055
     Dates: start: 20220318

REACTIONS (6)
  - Gingival pain [Not Recovered/Not Resolved]
  - Condition aggravated [Unknown]
  - Lip pain [Recovered/Resolved]
  - Lip dry [Recovered/Resolved]
  - Chapped lips [Recovered/Resolved]
  - Lip swelling [Recovered/Resolved]

NARRATIVE: CASE EVENT DATE: 20220301
